FAERS Safety Report 6104133-3 (Version None)
Quarter: 2009Q1

REPORT INFORMATION
  Report Type: 
  Country: None (occurrence: None)
  Receive Date: 20090305
  Receipt Date: 20090224
  Transmission Date: 20090719
  Serious: No
  Sender: FDA-Public Use
  Company Number: US-ELI_LILLY_AND_COMPANY-US200812005989

PATIENT
  Sex: Male

DRUGS (4)
  1. CIALIS [Suspect]
     Route: 065
  2. CIALIS [Suspect]
     Dosage: 5 MG, UNKNOWN
     Route: 065
  3. HORMONES NOS [Concomitant]
     Dosage: UNK, UNKNOWN
     Route: 065
  4. LUPRON [Concomitant]
     Indication: PROSTATE CANCER
     Dosage: UNK, UNKNOWN
     Route: 065

REACTIONS (1)
  - THERAPEUTIC RESPONSE DECREASED [None]
